FAERS Safety Report 10447316 (Version 1)
Quarter: 2014Q3

REPORT INFORMATION
  Report Type: Other
  Country: DK (occurrence: CA)
  Receive Date: 20140911
  Receipt Date: 20140911
  Transmission Date: 20150326
  Serious: Yes (Congenital Anomaly)
  Sender: FDA-Public Use
  Company Number: CA-FRI-1000070527

PATIENT
  Weight: 2.6 kg

DRUGS (8)
  1. ESCITALOPRAM [Suspect]
     Active Substance: ESCITALOPRAM OXALATE
     Dosage: 20 MG
     Route: 064
  2. BENZTROPINE [Suspect]
     Active Substance: BENZTROPINE
     Dosage: 1.5 MG
     Route: 064
  3. METHADONE [Suspect]
     Active Substance: METHADONE HYDROCHLORIDE
     Dosage: 70 MG
     Route: 064
  4. NORTRIPTYLINE [Suspect]
     Active Substance: NORTRIPTYLINE
     Dosage: 20 MG
     Route: 064
  5. RABEPRAZOLE [Suspect]
     Active Substance: RABEPRAZOLE
     Route: 064
  6. GABAPENTIN. [Suspect]
     Active Substance: GABAPENTIN
     Dosage: 1800 MG
     Route: 064
  7. QUETIAPINE [Suspect]
     Active Substance: QUETIAPINE
     Dosage: 300 MG SUSTAINED RELEASE AND 300 MG IMMEDIATE RELEASE
     Route: 064
  8. ZOPICLONE [Suspect]
     Active Substance: ZOPICLONE
     Route: 064

REACTIONS (3)
  - Trismus [Recovered/Resolved]
  - Foetal exposure during pregnancy [Recovered/Resolved]
  - Premature baby [Recovered/Resolved]
